FAERS Safety Report 20709625 (Version 1)
Quarter: 2022Q2

REPORT INFORMATION
  Report Type: Other
  Country: AR (occurrence: None)
  Receive Date: 20220414
  Receipt Date: 20220414
  Transmission Date: 20220721
  Serious: No
  Sender: FDA-Public Use
  Company Number: AR-ROCHE-3077298

PATIENT
  Sex: Female

DRUGS (1)
  1. OCREVUS [Suspect]
     Active Substance: OCRELIZUMAB
     Indication: Relapsing-remitting multiple sclerosis
     Dosage: DOSE AND FREQUENCY WERE UNKNOWN
     Route: 065
     Dates: start: 20200806

REACTIONS (2)
  - COVID-19 [Recovered/Resolved]
  - Product prescribing error [Unknown]
